FAERS Safety Report 4815470-4 (Version None)
Quarter: 2005Q4

REPORT INFORMATION
  Report Type: 
  Country: None (occurrence: None)
  Receive Date: 20051031
  Receipt Date: 20051020
  Transmission Date: 20060501
  Serious: Yes (Hospitalization, Other)
  Sender: FDA-Public Use
  Company Number: US-JNJFOC-20050904520

PATIENT
  Age: 71 Year
  Sex: Female

DRUGS (7)
  1. REMICADE [Suspect]
     Dosage: 5-6 MG/KG; 4TH INFUSION.
     Route: 042
  2. REMICADE [Suspect]
     Indication: RHEUMATOID ARTHRITIS
     Dosage: THREE INFUSIONS ON UNSPECIFIED DATES.
     Route: 042
  3. METHOTREXATE [Concomitant]
     Dosage: 5 TABS ONCE/WEEK
  4. VERELAN [Concomitant]
  5. MAXZIDE [Concomitant]
  6. MAXZIDE [Concomitant]
  7. KLOR-CON [Concomitant]

REACTIONS (7)
  - ACUTE PULMONARY OEDEMA [None]
  - AGITATION [None]
  - CORONARY ARTERY DISEASE [None]
  - INFUSION RELATED REACTION [None]
  - MYOCARDIAL INFARCTION [None]
  - RESPIRATORY FAILURE [None]
  - TACHYCARDIA [None]
